FAERS Safety Report 7300893-4 (Version None)
Quarter: 2011Q1

REPORT INFORMATION
  Report Type: 
  Country: None (occurrence: None)
  Receive Date: 20110218
  Receipt Date: 20110209
  Transmission Date: 20110831
  Serious: Yes (Other)
  Sender: FDA-Public Use
  Company Number: US-BAYER-2011-001517

PATIENT
  Sex: Female

DRUGS (21)
  1. MAGNEVIST [Suspect]
     Indication: NUCLEAR MAGNETIC RESONANCE IMAGING
  2. PHOSLO [Concomitant]
  3. GADOLINIUM IN UNSPECIFIED DRUG [Suspect]
     Indication: NUCLEAR MAGNETIC RESONANCE IMAGING
     Dosage: UNK
     Dates: start: 20040120, end: 20040120
  4. GADOLINIUM IN UNSPECIFIED DRUG [Suspect]
     Dosage: UNK
     Dates: start: 20040917, end: 20040917
  5. GADOLINIUM IN UNSPECIFIED DRUG [Suspect]
     Indication: CEREBRAL INFARCTION
     Dosage: UNK
     Dates: start: 20050426, end: 20050426
  6. PRILOSEC [Concomitant]
  7. UNCODEABLE ^UNKNOWN MANUFACTURER^ [Concomitant]
  8. CALCITRIOL [Concomitant]
  9. INSULIN [Concomitant]
  10. LYRICA [Concomitant]
  11. UNCODEABLE ^UNKNOWN MANUFACTURER^ [Concomitant]
  12. HEPARIN [Concomitant]
  13. OMNISCAN [Suspect]
     Indication: NUCLEAR MAGNETIC RESONANCE IMAGING
  14. FOLIC ACID [Concomitant]
  15. ULTRACET [Concomitant]
  16. UNCODEABLE ^UNCLASSIFIABLE^ [Concomitant]
  17. UNCODEABLE ^UNKNOWN MANUFACTURER^ [Concomitant]
  18. OPTIMARK [Suspect]
     Indication: NUCLEAR MAGNETIC RESONANCE IMAGING
  19. GADOLINIUM IN UNSPECIFIED DRUG [Suspect]
     Dosage: UNK
     Dates: start: 20041012, end: 20041012
  20. EPOGEN [Concomitant]
  21. UNCODEABLE ^UNKNOWN MANUFACTURER^ [Concomitant]

REACTIONS (11)
  - NEPHROGENIC SYSTEMIC FIBROSIS [None]
  - MOBILITY DECREASED [None]
  - PAIN [None]
  - COORDINATION ABNORMAL [None]
  - PAIN OF SKIN [None]
  - FIBROSIS [None]
  - SCAR [None]
  - GENERAL PHYSICAL HEALTH DETERIORATION [None]
  - SKIN TIGHTNESS [None]
  - MUSCLE RIGIDITY [None]
  - DEFORMITY [None]
